FAERS Safety Report 8177684-8 (Version None)
Quarter: 2012Q1

REPORT INFORMATION
  Report Type: 
  Country: None (occurrence: None)
  Receive Date: 20120301
  Receipt Date: 20120224
  Transmission Date: 20120608
  Serious: Yes (Other)
  Sender: FDA-Public Use
  Company Number: PHHY2011NZ110200

PATIENT
  Sex: Female

DRUGS (3)
  1. ZOLEDRONOC ACID [Suspect]
     Indication: OSTEOPOROSIS
     Dosage: 5 MG, YEARLY
     Route: 042
     Dates: start: 20111205
  2. ACETAMINOPHEN [Concomitant]
     Dosage: 1 G,
     Route: 048
     Dates: start: 20111201
  3. COLECALCIFEROL [Concomitant]
     Dosage: 1.25 MG, ONCE A MONTH
     Route: 048
     Dates: start: 20111201

REACTIONS (1)
  - EPISTAXIS [None]
